FAERS Safety Report 5281188-X (Version None)
Quarter: 2007Q1

REPORT INFORMATION
  Report Type: 
  Country: None (occurrence: None)
  Receive Date: 20061218
  Receipt Date: 20061016
  Transmission Date: 20070707
  Serious: Yes (Hospitalization)
  Sender: FDA-Public Use
  Company Number: US200610002701

PATIENT
  Age: 63 Year
  Sex: Male

DRUGS (2)
  1. HUMULIN N [Suspect]
     Indication: DIABETES MELLITUS
     Dates: start: 20030915
  2. CRESTOR [Concomitant]

REACTIONS (4)
  - BLOOD KETONE BODY [None]
  - GLUCOSE URINE [None]
  - HYPERGLYCAEMIA [None]
  - PYREXIA [None]
